FAERS Safety Report 4354060-7 (Version None)
Quarter: 2004Q2

REPORT INFORMATION
  Report Type: 
  Country: None (occurrence: None)
  Receive Date: 20040430
  Receipt Date: 20040426
  Transmission Date: 20050107
  Serious: Yes (Hospitalization)
  Sender: FDA-Public Use
  Company Number: TUK2004A00022

PATIENT
  Age: 61 Year
  Sex: Male

DRUGS (5)
  1. ACTOS [Suspect]
     Indication: DIABETES MELLITUS NON-INSULIN-DEPENDENT
     Dosage: 15 MG PER ORAL/DAYS
     Dates: start: 20030901, end: 20030901
  2. ACTOS [Suspect]
     Indication: DIABETES MELLITUS NON-INSULIN-DEPENDENT
     Dosage: 15 MG PER ORAL/DAYS
     Dates: start: 20040116, end: 20040123
  3. METFORMIN (METFORMIN) [Concomitant]
  4. LIPITOR [Concomitant]
  5. APOMORPHINE (APOMORPHINE) [Concomitant]

REACTIONS (7)
  - DYSPNOEA [None]
  - HEPATITIS ACUTE [None]
  - HEPATOMEGALY [None]
  - HYPERHIDROSIS [None]
  - LETHARGY [None]
  - MALAISE [None]
  - NAUSEA [None]
